FAERS Safety Report 8257533-X (Version None)
Quarter: 2012Q2

REPORT INFORMATION
  Report Type: 
  Country: None (occurrence: None)
  Receive Date: 20120403
  Receipt Date: 20120319
  Transmission Date: 20120825
  Serious: Yes (Hospitalization)
  Sender: FDA-Public Use
  Company Number: DK-JUTA GMBH-2012-05234

PATIENT
  Sex: Female
  Weight: 65 kg

DRUGS (2)
  1. AMLODIPINE BESYLATE [Suspect]
     Indication: HYPERTENSION
     Dosage: 10 MG, DAILY
     Route: 065
     Dates: start: 20120123
  2. LISINOPRIL [Suspect]
     Indication: HYPERTENSION
     Dosage: 10 MG, DAILY
     Route: 065
     Dates: start: 20111006

REACTIONS (6)
  - DRY MOUTH [None]
  - RASH [None]
  - BLISTER [None]
  - HYPERSENSITIVITY [None]
  - EYE SWELLING [None]
  - ALOPECIA [None]
